FAERS Safety Report 18619675 (Version 1)
Quarter: 2020Q4

REPORT INFORMATION
  Report Type: Other
  Country: CN (occurrence: CN)
  Receive Date: 20201215
  Receipt Date: 20201215
  Transmission Date: 20210114
  Serious: Yes (Hospitalization, Other)
  Sender: FDA-Public Use
  Company Number: CN-INCYTE CORPORATION-2020IN012474

PATIENT

DRUGS (3)
  1. JAKAVI [Suspect]
     Active Substance: RUXOLITINIB
     Indication: MYELOPROLIFERATIVE NEOPLASM
     Dosage: 5 MG, BID
     Route: 048
     Dates: start: 20200420, end: 20200805
  2. PREDNISONE ACETATE [Concomitant]
     Active Substance: PREDNISONE ACETATE
     Indication: MYELOPROLIFERATIVE NEOPLASM
     Dosage: 20 MG, QD
     Route: 048
     Dates: start: 20200402, end: 20200805
  3. DANAZOL. [Concomitant]
     Active Substance: DANAZOL
     Indication: MYELOPROLIFERATIVE NEOPLASM
     Dosage: 0.2 G, TID
     Route: 048
     Dates: start: 20200402, end: 20200805

REACTIONS (1)
  - Hepatic function abnormal [Recovering/Resolving]

NARRATIVE: CASE EVENT DATE: 20200725
